FAERS Safety Report 8058369 (Version 4)
Quarter: 2012Q4

REPORT INFORMATION
  Report Type: 
  Country: US (occurrence: US)
  Receive Date: 20110728
  Receipt Date: 20120917
  Transmission Date: 20130627
  Serious: Yes (Other)
  Sender: FDA-Public Use
  Company Number: PHEH2011US00511

PATIENT
  Sex: Male

DRUGS (3)
  1. AREDIA [Suspect]
     Indication: OSTEOPOROSIS PROPHYLAXIS
     Dates: end: 2002
  2. AREDIA [Suspect]
     Indication: MULTIPLE MYELOMA
  3. CELEBREX [Concomitant]
     Dosage: 200 mg,per day

REACTIONS (27)
  - Compression fracture [Unknown]
  - Intervertebral disc degeneration [Unknown]
  - Intervertebral disc protrusion [Unknown]
  - Abasia [Unknown]
  - Hypoaesthesia [Unknown]
  - Paraesthesia [Unknown]
  - Dysaesthesia [Unknown]
  - Depression [Unknown]
  - Diabetic gastroparesis [Unknown]
  - Nausea [Unknown]
  - Vomiting [Unknown]
  - Nephrolithiasis [Unknown]
  - Diverticulum intestinal [Unknown]
  - Osteolysis [Unknown]
  - Orthostatic hypotension [Unknown]
  - Osteomyelitis [Unknown]
  - Tongue amyloidosis [Unknown]
  - Back pain [Unknown]
  - Pulmonary granuloma [Unknown]
  - Aortic dilatation [Unknown]
  - Ataxia [Unknown]
  - Bone pain [Unknown]
  - Pain of skin [Unknown]
  - Arthralgia [Unknown]
  - Abdominal pain [Unknown]
  - Vertigo [Unknown]
  - Laceration [Unknown]
